FAERS Safety Report 18636464 (Version 1)
Quarter: 2020Q4

REPORT INFORMATION
  Report Type: Spontaneous
  Country: US (occurrence: US)
  Receive Date: 20201218
  Receipt Date: 20201218
  Transmission Date: 20210114
  Serious: Yes (Death, Other)
  Sender: FDA-Public Use
  Company Number: US-009507513-2012USA008432

PATIENT
  Age: 44 Year
  Sex: Female

DRUGS (3)
  1. REMERON [Suspect]
     Active Substance: MIRTAZAPINE
     Dosage: UNK, ROUTE- REPORTED AS INGESTION
     Route: 048
  2. DULOXETINE HYDROCHLORIDE. [Suspect]
     Active Substance: DULOXETINE HYDROCHLORIDE
     Dosage: UNK, FORMULATION-EXTENDED RELEASE (ER), ROUTE- REPORTED AS INGESTION
     Route: 048
  3. PRAZOSIN. [Suspect]
     Active Substance: PRAZOSIN
     Dosage: UNK, ROUTE- REPORTED AS INGESTION
     Route: 048

REACTIONS (1)
  - Suspected suicide [Fatal]
